FAERS Safety Report 23917352 (Version 1)
Quarter: 2024Q2

REPORT INFORMATION
  Report Type: Spontaneous
  Country: JP (occurrence: JP)
  Receive Date: 20240529
  Receipt Date: 20240529
  Transmission Date: 20240716
  Serious: Yes (Hospitalization, Other)
  Sender: FDA-Public Use
  Company Number: JP-STERISCIENCE B.V.-2024-ST-000731

PATIENT
  Age: 83 Year
  Sex: Male

DRUGS (2)
  1. MIDAZOLAM [Suspect]
     Active Substance: MIDAZOLAM
     Indication: Sedative therapy
     Dosage: UNK
     Route: 065
  2. LEVOBUPIVACAINE [Suspect]
     Active Substance: LEVOBUPIVACAINE
     Indication: Nerve block
     Dosage: 5 MILLILITER
     Route: 065

REACTIONS (2)
  - Paroxysmal nocturnal haemoglobinuria [Recovered/Resolved]
  - Condition aggravated [Recovered/Resolved]
